FAERS Safety Report 21464048 (Version 1)
Quarter: 2022Q4

REPORT INFORMATION
  Report Type: Spontaneous
  Country: JP (occurrence: JP)
  Receive Date: 20221017
  Receipt Date: 20221017
  Transmission Date: 20230112
  Serious: Yes (Other)
  Sender: FDA-Public Use
  Company Number: JP-CHUGAI-2022034022

PATIENT
  Age: 6 Decade

DRUGS (2)
  1. PERJETA [Suspect]
     Active Substance: PERTUZUMAB
     Indication: Rectal cancer
     Route: 041
     Dates: start: 20220706
  2. HERCEPTIN [Suspect]
     Active Substance: TRASTUZUMAB
     Indication: Rectal cancer
     Dosage: UNK
     Route: 041
     Dates: start: 20220706

REACTIONS (2)
  - Bacteraemia [Unknown]
  - Pyrexia [Recovered/Resolved]

NARRATIVE: CASE EVENT DATE: 20220706
